FAERS Safety Report 23631037 (Version 7)
Quarter: 2025Q3

REPORT INFORMATION
  Report Type: Spontaneous
  Country: EU (occurrence: EU)
  Receive Date: 20240314
  Receipt Date: 20250702
  Transmission Date: 20251020
  Serious: Yes (Other)
  Sender: SANDOZ
  Company Number: EU-Accord-161703

PATIENT
  Age: 9 Year
  Sex: Male

DRUGS (129)
  1. AMOXICILLIN [Suspect]
     Active Substance: AMOXICILLIN
     Indication: Antibiotic prophylaxis
     Route: 065
  2. AMOXICILLIN [Suspect]
     Active Substance: AMOXICILLIN
     Route: 065
  3. AMOXICILLIN [Suspect]
     Active Substance: AMOXICILLIN
     Route: 065
  4. AMSACRINE [Suspect]
     Active Substance: AMSACRINE
     Indication: Acute myeloid leukaemia
     Dosage: 100 MG/M2, Q12H
     Route: 065
  5. AMSACRINE [Suspect]
     Active Substance: AMSACRINE
     Dosage: 100 MG/M2 X 2/DAY, CYCLIC
     Route: 065
  6. AMSACRINE [Suspect]
     Active Substance: AMSACRINE
     Dosage: 200 MG/M2 (100 MILLIGRAM/SQ. METER, BID)
     Route: 065
  7. CYTARABINE [Suspect]
     Active Substance: CYTARABINE
     Indication: Acute myeloid leukaemia
     Dosage: 2 MG/M2, QD
     Route: 065
  8. CYTARABINE [Suspect]
     Active Substance: CYTARABINE
     Indication: Chemotherapy
     Dosage: 200 MG/M2, QD (1/DAY)
     Route: 065
  9. CYTARABINE [Suspect]
     Active Substance: CYTARABINE
     Dosage: 200 MG/M2, QD (1/DAY)
     Route: 065
  10. CYTARABINE [Suspect]
     Active Substance: CYTARABINE
     Route: 065
  11. CYTARABINE [Suspect]
     Active Substance: CYTARABINE
     Route: 065
  12. CYTARABINE [Suspect]
     Active Substance: CYTARABINE
     Dosage: UNK UNK, BID, 3 G/M2, BID (2/DAY)
     Route: 065
  13. CYTARABINE [Suspect]
     Active Substance: CYTARABINE
     Dosage: UNK UNK, BID, 3 G/M2, BID (2/DAY)
     Route: 065
  14. CYTARABINE [Suspect]
     Active Substance: CYTARABINE
     Dosage: UNK UNK, BID, 3 G/M2, BID (2/DAY)
     Route: 065
  15. CYTARABINE [Suspect]
     Active Substance: CYTARABINE
     Route: 065
  16. CYTARABINE [Suspect]
     Active Substance: CYTARABINE
     Route: 065
  17. CYTARABINE [Suspect]
     Active Substance: CYTARABINE
     Route: 065
  18. CYTARABINE [Suspect]
     Active Substance: CYTARABINE
     Route: 065
  19. CYTARABINE [Suspect]
     Active Substance: CYTARABINE
     Route: 065
  20. CYTARABINE [Suspect]
     Active Substance: CYTARABINE
     Route: 065
  21. CYTARABINE [Suspect]
     Active Substance: CYTARABINE
     Route: 065
  22. CYTARABINE [Suspect]
     Active Substance: CYTARABINE
     Route: 065
  23. CYTARABINE [Suspect]
     Active Substance: CYTARABINE
     Route: 065
  24. CYTARABINE [Suspect]
     Active Substance: CYTARABINE
     Route: 065
  25. CYTARABINE [Suspect]
     Active Substance: CYTARABINE
     Route: 065
  26. BASILIXIMAB [Suspect]
     Active Substance: BASILIXIMAB
     Indication: Acute myeloid leukaemia
     Route: 065
  27. BASILIXIMAB [Suspect]
     Active Substance: BASILIXIMAB
     Indication: Chronic graft versus host disease in intestine
     Route: 065
  28. BASILIXIMAB [Suspect]
     Active Substance: BASILIXIMAB
     Indication: Chronic graft versus host disease in skin
     Route: 065
  29. BASILIXIMAB [Suspect]
     Active Substance: BASILIXIMAB
     Indication: Graft versus host disease in lung
     Route: 065
  30. BASILIXIMAB [Suspect]
     Active Substance: BASILIXIMAB
     Indication: Graft versus host disease in lung
     Route: 065
  31. BASILIXIMAB [Suspect]
     Active Substance: BASILIXIMAB
     Indication: Immunosuppression
     Route: 065
  32. BASILIXIMAB [Suspect]
     Active Substance: BASILIXIMAB
     Route: 065
  33. BASILIXIMAB [Suspect]
     Active Substance: BASILIXIMAB
     Route: 065
  34. BASILIXIMAB [Suspect]
     Active Substance: BASILIXIMAB
     Route: 065
  35. BASILIXIMAB [Suspect]
     Active Substance: BASILIXIMAB
     Route: 065
  36. BASILIXIMAB [Suspect]
     Active Substance: BASILIXIMAB
     Indication: Chronic graft versus host disease in intestine
     Route: 065
  37. BASILIXIMAB [Suspect]
     Active Substance: BASILIXIMAB
     Indication: Immunosuppressant drug therapy
     Route: 065
  38. BUSULFAN [Suspect]
     Active Substance: BUSULFAN
     Dosage: 1.2 MG/KG, QD, 4X PER DAY
     Route: 065
  39. BUSULFAN [Suspect]
     Active Substance: BUSULFAN
     Indication: Product used for unknown indication
     Route: 065
  40. CYCLOSPORINE [Suspect]
     Active Substance: CYCLOSPORINE
     Indication: Acute myeloid leukaemia
     Route: 065
  41. CYCLOSPORINE [Suspect]
     Active Substance: CYCLOSPORINE
     Indication: Graft versus host disease
     Route: 065
  42. CYCLOSPORINE [Suspect]
     Active Substance: CYCLOSPORINE
     Route: 065
  43. CYCLOPHOSPHAMIDE [Suspect]
     Active Substance: CYCLOPHOSPHAMIDE
     Indication: Bone marrow conditioning regimen
     Dosage: 50 MG/KG, QID, 200 MG/KG (50 MILLIGRAM/KILOGRAM, QID), 1 TIMES IN
     Route: 065
  44. CYCLOPHOSPHAMIDE [Suspect]
     Active Substance: CYCLOPHOSPHAMIDE
     Indication: Product used for unknown indication
  45. CELLCEPT [Suspect]
     Active Substance: MYCOPHENOLATE MOFETIL
     Indication: Antibiotic prophylaxis
     Dosage: 100 MG/M2, Q12H, 100 MG/M2, BID (2/DAY)
     Route: 065
  46. CELLCEPT [Suspect]
     Active Substance: MYCOPHENOLATE MOFETIL
     Dosage: 40 MG/M2, QD ONCE IN1DAY
     Route: 065
  47. CELLCEPT [Suspect]
     Active Substance: MYCOPHENOLATE MOFETIL
     Dosage: 8 MG/M2, QD, (1/DAY), D2, D4, J6
     Route: 065
  48. CELLCEPT [Suspect]
     Active Substance: MYCOPHENOLATE MOFETIL
     Route: 065
  49. DAUNORUBICIN [Suspect]
     Active Substance: DAUNORUBICIN
     Indication: Acute myeloid leukaemia
     Dosage: 40 MG/M2, QD, CYCLIC
     Route: 065
  50. DAUNORUBICIN [Suspect]
     Active Substance: DAUNORUBICIN
     Indication: Acute myeloid leukaemia
  51. ETOPOSIDE [Suspect]
     Active Substance: ETOPOSIDE
     Indication: Acute myeloid leukaemia
     Dosage: 100 MG/M2, QD (1/DAY), ONCE IN1DAY
     Route: 065
  52. FLUDARABINE PHOSPHATE [Suspect]
     Active Substance: FLUDARABINE PHOSPHATE
     Indication: Acute myeloid leukaemia
     Dosage: 30 MG/M2, QD (1/DAY) D2 TO D6
     Route: 065
  53. GRANULOCYTE COLONY-STIMULATING FACTOR NOS [Suspect]
     Active Substance: GRANULOCYTE COLONY-STIMULATING FACTOR NOS
     Indication: Acute myeloid leukaemia
     Route: 065
  54. INFLIXIMAB [Suspect]
     Active Substance: INFLIXIMAB
     Indication: Immunosuppression
     Route: 065
  55. INFLIXIMAB [Suspect]
     Active Substance: INFLIXIMAB
     Route: 065
  56. INFLIXIMAB [Suspect]
     Active Substance: INFLIXIMAB
     Route: 065
  57. IDARUBICIN [Suspect]
     Active Substance: IDARUBICIN
     Indication: Acute myeloid leukaemia
     Dosage: 8 MG/M2, QD (1/DAY), D2, D4, J6
     Route: 065
  58. IDARUBICIN [Suspect]
     Active Substance: IDARUBICIN
     Indication: Acute myeloid leukaemia
  59. ASPARAGINASE [Suspect]
     Active Substance: ASPARAGINASE
     Indication: Acute myeloid leukaemia
     Route: 065
  60. ASPARAGINASE [Suspect]
     Active Substance: ASPARAGINASE
     Route: 065
  61. LENOGRASTIM [Suspect]
     Active Substance: LENOGRASTIM
     Indication: Acute myeloid leukaemia
     Route: 065
  62. LENOGRASTIM [Suspect]
     Active Substance: LENOGRASTIM
     Route: 065
  63. LENOGRASTIM [Suspect]
     Active Substance: LENOGRASTIM
     Route: 065
  64. LENOGRASTIM [Suspect]
     Active Substance: LENOGRASTIM
     Route: 065
  65. LENOGRASTIM [Suspect]
     Active Substance: LENOGRASTIM
     Route: 065
  66. ASPARAGINASE [Suspect]
     Active Substance: ASPARAGINASE
     Indication: Acute myeloid leukaemia
     Dosage: UNK, QD
     Route: 065
  67. METHOTREXATE [Suspect]
     Active Substance: METHOTREXATE
     Route: 065
  68. METHOTREXATE [Suspect]
     Active Substance: METHOTREXATE
     Route: 065
  69. METHOTREXATE [Suspect]
     Active Substance: METHOTREXATE
     Indication: Product used for unknown indication
     Route: 042
  70. MYCOPHENOLATE MOFETIL [Suspect]
     Active Substance: MYCOPHENOLATE MOFETIL
     Indication: Immunosuppression
     Route: 065
  71. MYCOPHENOLATE MOFETIL [Suspect]
     Active Substance: MYCOPHENOLATE MOFETIL
     Route: 065
  72. NOVANTRONE [Suspect]
     Active Substance: MITOXANTRONE HYDROCHLORIDE
     Indication: Acute myeloid leukaemia
     Dosage: 10 MG/M2, QD (1/DAY), CYCLIC
     Route: 065
  73. RITUXIMAB [Suspect]
     Active Substance: RITUXIMAB
     Indication: Immunosuppression
     Route: 065
  74. RITUXIMAB [Suspect]
     Active Substance: RITUXIMAB
     Indication: Immunosuppression
     Route: 065
  75. RITUXIMAB [Suspect]
     Active Substance: RITUXIMAB
     Route: 065
  76. TACROLIMUS [Suspect]
     Active Substance: TACROLIMUS
     Indication: Immunosuppression
     Route: 065
  77. TACROLIMUS [Suspect]
     Active Substance: TACROLIMUS
     Route: 065
  78. TACROLIMUS [Suspect]
     Active Substance: TACROLIMUS
     Route: 065
  79. THYMOGLOBULIN [Suspect]
     Active Substance: LAPINE T-LYMPHOCYTE IMMUNE GLOBULIN
     Indication: Graft versus host disease
     Route: 065
  80. THYMOGLOBULIN [Suspect]
     Active Substance: LAPINE T-LYMPHOCYTE IMMUNE GLOBULIN
     Indication: Immunosuppression
     Route: 065
  81. THYMOGLOBULIN [Suspect]
     Active Substance: LAPINE T-LYMPHOCYTE IMMUNE GLOBULIN
     Indication: Prophylaxis against graft versus host disease
     Route: 065
  82. ZOVIRAX [Suspect]
     Active Substance: ACYCLOVIR
     Route: 065
  83. ZOVIRAX [Suspect]
     Active Substance: ACYCLOVIR
     Route: 065
  84. ZOVIRAX [Suspect]
     Active Substance: ACYCLOVIR
     Route: 065
  85. ZOVIRAX [Suspect]
     Active Substance: ACYCLOVIR
     Indication: Product used for unknown indication
     Route: 065
  86. AMPHOTERICIN B [Concomitant]
     Active Substance: AMPHOTERICIN B
     Indication: Product used for unknown indication
     Route: 065
  87. AMPHOTERICIN B [Concomitant]
     Active Substance: AMPHOTERICIN B
     Route: 065
  88. AMPHOTERICIN B [Concomitant]
     Active Substance: AMPHOTERICIN B
     Route: 065
  89. AMPHOTERICIN B [Concomitant]
     Active Substance: AMPHOTERICIN B
     Route: 065
  90. AMPHOTERICIN B [Concomitant]
     Active Substance: AMPHOTERICIN B
     Route: 065
  91. AMPHOTERICIN B [Concomitant]
     Active Substance: AMPHOTERICIN B
     Route: 065
  92. AMPHOTERICIN B [Concomitant]
     Active Substance: AMPHOTERICIN B
     Route: 065
  93. AMPHOTERICIN B [Concomitant]
     Active Substance: AMPHOTERICIN B
     Route: 065
  94. AMPHOTERICIN B [Concomitant]
     Active Substance: AMPHOTERICIN B
     Route: 065
  95. AMPHOTERICIN B [Concomitant]
     Active Substance: AMPHOTERICIN B
     Route: 065
  96. ACYCLOVIR [Concomitant]
     Active Substance: ACYCLOVIR
     Indication: Product used for unknown indication
     Route: 065
  97. CASPOFUNGIN [Concomitant]
     Active Substance: CASPOFUNGIN
     Indication: Graft versus host disease
     Route: 065
  98. CASPOFUNGIN [Concomitant]
     Active Substance: CASPOFUNGIN
     Indication: Immunosuppression
     Route: 065
  99. CASPOFUNGIN [Concomitant]
     Active Substance: CASPOFUNGIN
     Route: 065
  100. CASPOFUNGIN [Concomitant]
     Active Substance: CASPOFUNGIN
     Route: 065
  101. PROGRAF [Concomitant]
     Active Substance: TACROLIMUS
     Indication: Immunosuppressant drug therapy
     Dosage: 0.5 MG, EVERY OTHER DAY
     Route: 048
     Dates: start: 200906, end: 20101014
  102. PROGRAF [Concomitant]
     Active Substance: TACROLIMUS
     Indication: Graft versus host disease
     Route: 065
  103. BETAMETHASONE SODIUM PHOSPHATE [Concomitant]
     Active Substance: BETAMETHASONE SODIUM PHOSPHATE
     Indication: Product used for unknown indication
     Route: 065
  104. TOLNAFTATE [Concomitant]
     Active Substance: TOLNAFTATE
     Route: 065
  105. TOLNAFTATE [Concomitant]
     Active Substance: TOLNAFTATE
     Route: 065
  106. TOLNAFTATE [Concomitant]
     Active Substance: TOLNAFTATE
     Route: 065
  107. TOLNAFTATE [Concomitant]
     Active Substance: TOLNAFTATE
     Route: 065
  108. TOLNAFTATE [Concomitant]
     Active Substance: TOLNAFTATE
     Route: 065
  109. TOLNAFTATE [Concomitant]
     Active Substance: TOLNAFTATE
     Route: 065
  110. TOLNAFTATE [Concomitant]
     Active Substance: TOLNAFTATE
     Route: 065
  111. TOLNAFTATE [Concomitant]
     Active Substance: TOLNAFTATE
     Route: 065
  112. TOLNAFTATE [Concomitant]
     Active Substance: TOLNAFTATE
     Route: 065
  113. TOLNAFTATE [Concomitant]
     Active Substance: TOLNAFTATE
     Route: 065
  114. TOLNAFTATE [Concomitant]
     Active Substance: TOLNAFTATE
     Route: 065
  115. TOLNAFTATE [Concomitant]
     Active Substance: TOLNAFTATE
     Route: 065
  116. TOLNAFTATE [Concomitant]
     Active Substance: TOLNAFTATE
     Route: 065
  117. TOLNAFTATE [Concomitant]
     Active Substance: TOLNAFTATE
     Route: 065
  118. TOLNAFTATE [Concomitant]
     Active Substance: TOLNAFTATE
     Route: 065
  119. TOLNAFTATE [Concomitant]
     Active Substance: TOLNAFTATE
     Indication: Graft versus host disease
     Route: 065
  120. TOLNAFTATE [Concomitant]
     Active Substance: TOLNAFTATE
     Route: 065
  121. TOLNAFTATE [Concomitant]
     Active Substance: TOLNAFTATE
     Route: 065
  122. TOLNAFTATE [Concomitant]
     Active Substance: TOLNAFTATE
     Route: 065
  123. TOLNAFTATE [Concomitant]
     Active Substance: TOLNAFTATE
     Route: 065
  124. TOLNAFTATE [Concomitant]
     Active Substance: TOLNAFTATE
     Route: 065
  125. TOLNAFTATE [Concomitant]
     Active Substance: TOLNAFTATE
     Route: 065
  126. TOLNAFTATE [Concomitant]
     Active Substance: TOLNAFTATE
     Route: 065
  127. TOLNAFTATE [Concomitant]
     Active Substance: TOLNAFTATE
     Route: 065
  128. TOLNAFTATE [Concomitant]
     Active Substance: TOLNAFTATE
     Route: 065
  129. VORICONAZOLE [Concomitant]
     Active Substance: VORICONAZOLE
     Indication: Product used for unknown indication
     Route: 065

REACTIONS (12)
  - Tooth hypoplasia [Not Recovered/Not Resolved]
  - Gastrointestinal disorder [Unknown]
  - Skin lesion [Unknown]
  - Enamel anomaly [Unknown]
  - Tooth disorder [Unknown]
  - Mucormycosis [Recovered/Resolved]
  - Acute graft versus host disease in intestine [Unknown]
  - Acute graft versus host disease in skin [Unknown]
  - Chronic graft versus host disease [Unknown]
  - Bronchopulmonary aspergillosis [Recovered/Resolved]
  - Product use in unapproved indication [Unknown]
  - Off label use [Unknown]
